FAERS Safety Report 20069898 (Version 1)
Quarter: 2021Q4

REPORT INFORMATION
  Report Type: Spontaneous
  Country: BR (occurrence: BR)
  Receive Date: 20211115
  Receipt Date: 20211115
  Transmission Date: 20220303
  Serious: Yes (Disabling, Other)
  Sender: FDA-Public Use
  Company Number: None

PATIENT
  Sex: Male
  Weight: 95 kg

DRUGS (17)
  1. LOSARTAN POTASSIUM [Suspect]
     Active Substance: LOSARTAN POTASSIUM
     Dosage: UNK
     Route: 065
  2. COSENTYX [Suspect]
     Active Substance: SECUKINUMAB
     Indication: Psoriatic arthropathy
     Dosage: 300 MILLIGRAM, QW, WEEKLY
     Route: 058
     Dates: start: 20180515
  3. COSENTYX [Suspect]
     Active Substance: SECUKINUMAB
     Dosage: 300 MILLIGRAM, QM, MONTHLY
     Route: 058
  4. COSENTYX [Suspect]
     Active Substance: SECUKINUMAB
     Dosage: 300 MILLIGRAM, QM, MONTHLY
     Route: 058
     Dates: start: 20181015
  5. COSENTYX [Suspect]
     Active Substance: SECUKINUMAB
     Dosage: 300 MILLIGRAM, QM, MONTHLY
     Route: 058
     Dates: start: 20181114
  6. COSENTYX [Suspect]
     Active Substance: SECUKINUMAB
     Dosage: UNK
     Route: 065
     Dates: start: 20190320
  7. COSENTYX [Suspect]
     Active Substance: SECUKINUMAB
     Dosage: UNK
     Route: 065
     Dates: start: 20190917
  8. COSENTYX [Suspect]
     Active Substance: SECUKINUMAB
     Dosage: 300 MILLIGRAM, UNKNOWN FREQUENCY
     Route: 065
     Dates: start: 20210112
  9. COSENTYX [Suspect]
     Active Substance: SECUKINUMAB
     Dosage: UNK
     Dates: start: 20210312
  10. COSENTYX [Suspect]
     Active Substance: SECUKINUMAB
     Indication: Psoriatic arthropathy
     Dosage: UNK
  11. METHOTREXATE [Suspect]
     Active Substance: METHOTREXATE
     Dosage: 10 MILLIGRAM, UNKNOWN FREQUENCY
  12. METHOTREXATE [Suspect]
     Active Substance: METHOTREXATE
     Dosage: UNKNOWN DOSE, WEEKLY (EVERY TUESDAY)
  13. CAPTOPRIL [Suspect]
     Active Substance: CAPTOPRIL
     Dosage: UNK
     Route: 065
  14. ENBREL [Suspect]
     Active Substance: ETANERCEPT
     Dosage: UNK, QW, UNKNOWN DOSE, WEEKLY (EVERY TUESDAY)
     Dates: start: 2008, end: 2018
  15. LEFLUNOMIDE [Concomitant]
     Active Substance: LEFLUNOMIDE
     Dosage: UNK
  16. CYCLOBENZAPRINE HYDROCHLORIDE [Concomitant]
     Active Substance: CYCLOBENZAPRINE HYDROCHLORIDE
     Dosage: UNK
     Route: 065
  17. METICORTEN [Concomitant]
     Active Substance: PREDNISONE
     Route: 065

REACTIONS (65)
  - Visual impairment [Not Recovered/Not Resolved]
  - Gait inability [Unknown]
  - Cataract [Not Recovered/Not Resolved]
  - Glaucoma [Unknown]
  - Hepatitis [Unknown]
  - Diarrhoea haemorrhagic [Unknown]
  - Pain [Not Recovered/Not Resolved]
  - Diabetes mellitus [Unknown]
  - Ligament rupture [Not Recovered/Not Resolved]
  - Tendon injury [Not Recovered/Not Resolved]
  - Gouty arthritis [Not Recovered/Not Resolved]
  - Drug resistance [Not Recovered/Not Resolved]
  - Chills [Not Recovered/Not Resolved]
  - Sleep disorder [Not Recovered/Not Resolved]
  - Fall [Unknown]
  - Rib fracture [Unknown]
  - Arthritis [Not Recovered/Not Resolved]
  - Pain in extremity [Recovering/Resolving]
  - Purulence [Unknown]
  - Infection [Unknown]
  - Limb injury [Unknown]
  - Peripheral swelling [Unknown]
  - Concomitant disease aggravated [Not Recovered/Not Resolved]
  - Blood pressure inadequately controlled [Not Recovered/Not Resolved]
  - Hyperhidrosis [Unknown]
  - Discomfort [Unknown]
  - Asthenia [Unknown]
  - Tremor [Unknown]
  - Vision blurred [Not Recovered/Not Resolved]
  - Dizziness [Unknown]
  - Dyspnoea [Unknown]
  - Pollakiuria [Unknown]
  - Feeling abnormal [Recovering/Resolving]
  - Feeling of despair [Unknown]
  - Joint swelling [Not Recovered/Not Resolved]
  - Joint stiffness [Unknown]
  - Gait disturbance [Recovering/Resolving]
  - Joint dislocation [Not Recovered/Not Resolved]
  - Fluid retention [Recovered/Resolved]
  - Arthropathy [Unknown]
  - Osteoarthritis [Unknown]
  - Blood triglycerides abnormal [Unknown]
  - Therapeutic response decreased [Unknown]
  - Product dose omission issue [Unknown]
  - Drug ineffective [Unknown]
  - Thirst [Unknown]
  - Decreased appetite [Unknown]
  - Dry mouth [Unknown]
  - Weight fluctuation [Not Recovered/Not Resolved]
  - Influenza [Unknown]
  - Cough [Unknown]
  - Eye pain [Unknown]
  - Pyrexia [Unknown]
  - Back pain [Unknown]
  - Bone pain [Unknown]
  - Paraesthesia [Unknown]
  - Hypoaesthesia [Unknown]
  - Sciatica [Recovering/Resolving]
  - Ageusia [Unknown]
  - Application site pain [Recovered/Resolved]
  - Heart rate abnormal [Recovered/Resolved]
  - Movement disorder [Recovering/Resolving]
  - Muscle spasms [Recovered/Resolved]
  - Finger deformity [Recovered/Resolved]
  - Decreased interest [Recovered/Resolved]

NARRATIVE: CASE EVENT DATE: 20180101
